FAERS Safety Report 5136803-8 (Version None)
Quarter: 2006Q4

REPORT INFORMATION
  Report Type: 
  Country: None (occurrence: None)
  Receive Date: 20061023
  Receipt Date: 20061012
  Transmission Date: 20070319
  Serious: Yes (Other)
  Sender: FDA-Public Use
  Company Number: 225307

PATIENT
  Age: 11 Year
  Sex: Female
  Weight: 40 kg

DRUGS (7)
  1. XOLAIR [Suspect]
     Indication: DRUG USE FOR UNKNOWN INDICATION
     Dosage: 300 MG, SUBCUTANEOUS
     Route: 058
     Dates: start: 20060426, end: 20060427
  2. PREDNISONE TAB [Concomitant]
  3. ADVAIR DISKUS 100/50 [Concomitant]
  4. SINGULAIR [Concomitant]
  5. FERRITIN (FERRITIN) [Concomitant]
  6. VENTOLIN (ALBUTEROL/ALBUTEROL SULFATE) [Concomitant]
  7. CLARITIN [Concomitant]

REACTIONS (15)
  - ARRHYTHMIA [None]
  - ATRIAL TACHYCARDIA [None]
  - DEHYDRATION [None]
  - ELECTROCARDIOGRAM P WAVE ABNORMAL [None]
  - ELECTROCARDIOGRAM P WAVE BIPHASIC [None]
  - ELECTROCARDIOGRAM QT PROLONGED [None]
  - FATIGUE [None]
  - MITRAL VALVE PROLAPSE [None]
  - SINUS TACHYCARDIA [None]
  - SOMNOLENCE [None]
  - STOMACH DISCOMFORT [None]
  - SUPRAVENTRICULAR EXTRASYSTOLES [None]
  - SUPRAVENTRICULAR TACHYCARDIA [None]
  - VIRAL INFECTION [None]
  - VOMITING [None]
